FAERS Safety Report 4502818-3 (Version None)
Quarter: 2004Q4

REPORT INFORMATION
  Report Type: 
  Country: None (occurrence: None)
  Receive Date: 20041112
  Receipt Date: 20041029
  Transmission Date: 20050328
  Serious: Yes (Other)
  Sender: FDA-Public Use
  Company Number: 430002K04USA

PATIENT
  Age: 46 Year
  Sex: Female
  Weight: 110 kg

DRUGS (12)
  1. NOVANTRONE [Suspect]
     Indication: MULTIPLE SCLEROSIS
     Dosage: 28 NG, 1 IN 3 MONTHS, INTRAVENOUS
     Route: 042
     Dates: start: 20020301, end: 20030601
  2. AVONEX [Suspect]
     Dates: start: 20010901, end: 20010901
  3. AVONEX [Suspect]
     Dates: start: 20030301, end: 20031001
  4. ALTACE [Concomitant]
  5. TOPROL (METOPROLOL SUCCINATE0 [Concomitant]
  6. BETASERON (BETASERON) [Concomitant]
  7. DITROPAN [Concomitant]
  8. SYNTHROID [Concomitant]
  9. VOLTAREN [Concomitant]
  10. IMIPRAMINE [Concomitant]
  11. ZANAFLEX 9TIZANIDINE HYDROCHLORIDE0 [Concomitant]
  12. BACTRIM [Concomitant]

REACTIONS (7)
  - ANXIETY [None]
  - CARDIOMYOPATHY [None]
  - EJECTION FRACTION DECREASED [None]
  - HEADACHE [None]
  - INJECTION SITE DISCOMFORT [None]
  - OEDEMA PERIPHERAL [None]
  - PALPITATIONS [None]
